FAERS Safety Report 21844430 (Version 1)
Quarter: 2023Q1

REPORT INFORMATION
  Report Type: Spontaneous
  Country: US (occurrence: US)
  Receive Date: 20230110
  Receipt Date: 20230110
  Transmission Date: 20230418
  Serious: Yes (Life-Threatening, Hospitalization, Other)
  Sender: FDA-Public Use
  Company Number: US-MLMSERVICE-20221229-4009375-1

PATIENT
  Age: 25 Year
  Sex: Female

DRUGS (1)
  1. ACETAMINOPHEN [Suspect]
     Active Substance: ACETAMINOPHEN
     Indication: Suicide attempt
     Dosage: UNK
     Route: 048

REACTIONS (5)
  - Hepatic encephalopathy [Unknown]
  - Brain herniation [Unknown]
  - Acute hepatic failure [Not Recovered/Not Resolved]
  - Brain oedema [Unknown]
  - Intentional overdose [Recovered/Resolved]
